FAERS Safety Report 11752066 (Version 1)
Quarter: 2015Q4

REPORT INFORMATION
  Report Type: Spontaneous
  Country: US (occurrence: US)
  Receive Date: 20151118
  Receipt Date: 20151118
  Transmission Date: 20160304
  Serious: No
  Sender: FDA-Public Use
  Company Number: US-UCBSA-2015014733

PATIENT
  Sex: Female

DRUGS (1)
  1. GLYCOLAX [Suspect]
     Active Substance: POLYETHYLENE GLYCOL 3350
     Indication: PRODUCT USED FOR UNKNOWN INDICATION
     Dosage: UNK
     Dates: start: 201505

REACTIONS (3)
  - Product label confusion [None]
  - Drug ineffective [Unknown]
  - Product physical issue [None]

NARRATIVE: CASE EVENT DATE: 201505
